FAERS Safety Report 4663530-3 (Version None)
Quarter: 2005Q2

REPORT INFORMATION
  Report Type: 
  Country: None (occurrence: None)
  Receive Date: 20050517
  Receipt Date: 20050331
  Transmission Date: 20051028
  Serious: Yes (Hospitalization)
  Sender: FDA-Public Use
  Company Number: JP-GLAXOSMITHKLINE-B0376565A

PATIENT
  Age: 65 Year
  Sex: Male
  Weight: 54 kg

DRUGS (8)
  1. ZOVIRAX [Suspect]
     Indication: HERPES ZOSTER
     Dosage: 400MG TWICE PER DAY
     Route: 048
     Dates: start: 20050328, end: 20050401
  2. VASOLAN [Concomitant]
     Indication: ATRIAL FIBRILLATION
     Dosage: 120MG PER DAY
     Route: 048
  3. SELBEX [Concomitant]
     Dosage: 150MG PER DAY
     Route: 048
  4. MAGNESIUM OXIDE [Concomitant]
     Dosage: 1.5G PER DAY
     Route: 048
  5. ZANTAC [Concomitant]
     Dosage: 150MG PER DAY
     Route: 048
  6. RISPERDAL [Concomitant]
     Indication: DELIRIUM
     Dosage: 2MG PER DAY
     Route: 048
  7. PREDONINE [Concomitant]
     Indication: INTERSTITIAL LUNG DISEASE
     Dosage: 30MG PER DAY
     Route: 048
     Dates: start: 20050307
  8. LENDORM [Concomitant]
     Dosage: .25MG PER DAY
     Route: 048

REACTIONS (2)
  - CONDITION AGGRAVATED [None]
  - DELIRIUM [None]
